FAERS Safety Report 6071781-9 (Version None)
Quarter: 2009Q1

REPORT INFORMATION
  Report Type: 
  Country: None (occurrence: None)
  Receive Date: 20090205
  Receipt Date: 20090120
  Transmission Date: 20090719
  Serious: Yes (Death)
  Sender: FDA-Public Use
  Company Number: 2008S1004657

PATIENT
  Age: 66 Year
  Sex: Male

DRUGS (11)
  1. CITALOPRAM HYDROBROMIDE [Suspect]
     Indication: DEPRESSION
     Dosage: 20 MG;DAILY
     Dates: start: 20070601, end: 20070601
  2. CITALOPRAM HYDROBROMIDE [Suspect]
     Indication: DEPRESSION
     Dosage: 20 MG;DAILY
     Dates: start: 20070402
  3. MIRTAZAPINE [Suspect]
     Indication: DRUG USE FOR UNKNOWN INDICATION
     Dates: start: 20070601, end: 20070601
  4. ACETAMINOPHEN [Suspect]
     Indication: DRUG USE FOR UNKNOWN INDICATION
     Dates: start: 20070601, end: 20070601
  5. ETORICOXIB (ETORICOXIB) (90 MG) [Suspect]
     Indication: MUSCULOSKELETAL PAIN
     Dosage: 90 MG;DAILY;ORAL
     Route: 048
     Dates: start: 20070601, end: 20070601
  6. ETORICOXIB (ETORICOXIB) (90 MG) [Suspect]
     Indication: MUSCULOSKELETAL PAIN
     Dosage: 90 MG;DAILY;ORAL
     Route: 048
     Dates: start: 20070322
  7. OXYCODONE (OXYCODONE) (80 MG) [Suspect]
     Indication: MUSCULOSKELETAL PAIN
     Dosage: 80 MG;4 TIMES A DAY
     Dates: end: 20070416
  8. OXYCODONE (OXYCODONE) (80 MG) [Suspect]
     Indication: MUSCULOSKELETAL PAIN
     Dosage: 80 MG;4 TIMES A DAY
     Dates: start: 20070601, end: 20070601
  9. DICLOFENAC SODIUM [Concomitant]
  10. DIHYDROCODEINE BITARTRATE INJ [Concomitant]
  11. OXAZEPAM [Concomitant]

REACTIONS (3)
  - CORONARY ARTERY DISEASE [None]
  - DRUG INTERACTION [None]
  - MULTIPLE DRUG OVERDOSE [None]
